FAERS Safety Report 19903309 (Version 2)
Quarter: 2021Q4

REPORT INFORMATION
  Report Type: Spontaneous
  Country: FR (occurrence: FR)
  Receive Date: 20211001
  Receipt Date: 20211015
  Transmission Date: 20220304
  Serious: Yes (Death, Hospitalization, Other)
  Sender: FDA-Public Use
  Company Number: FR-CELLTRION INC.-2021FR013199

PATIENT

DRUGS (3)
  1. RITUXIMAB [Suspect]
     Active Substance: RITUXIMAB
     Indication: Epstein-Barr virus test positive
     Dosage: UNK
     Route: 065
  2. RUXOLITINIB [Suspect]
     Active Substance: RUXOLITINIB
     Indication: Graft versus host disease
     Dosage: 10 MILLIGRAM, 0.5 DAY
     Route: 065
  3. CYCLOSPORINE [Suspect]
     Active Substance: CYCLOSPORINE
     Indication: Graft versus host disease
     Dosage: UNK
     Route: 065

REACTIONS (11)
  - Septic shock [Fatal]
  - Adenovirus infection [Fatal]
  - Metapneumovirus infection [Unknown]
  - Enterovirus infection [Unknown]
  - Pneumonia [Unknown]
  - Rhinovirus infection [Unknown]
  - Bacteroides bacteraemia [Unknown]
  - Dermatitis exfoliative generalised [Unknown]
  - Genital herpes [Unknown]
  - Diarrhoea [Unknown]
  - Off label use [Unknown]
